FAERS Safety Report 21378178 (Version 7)
Quarter: 2025Q3

REPORT INFORMATION
  Report Type: Spontaneous
  Country: JP (occurrence: JP)
  Receive Date: 20220927
  Receipt Date: 20250717
  Transmission Date: 20251021
  Serious: Yes (Death, Hospitalization, Other)
  Sender: NOVARTIS
  Company Number: JP-NOVARTISPH-NVSJ2022JP098020

PATIENT
  Age: 74 Year
  Sex: Female
  Weight: 25 kg

DRUGS (5)
  1. GLIVEC [Suspect]
     Active Substance: IMATINIB MESYLATE
     Indication: Chronic myeloid leukaemia transformation
     Route: 048
     Dates: end: 20211219
  2. IMATINIB MESYLATE [Suspect]
     Active Substance: IMATINIB MESYLATE
     Indication: Chronic myeloid leukaemia transformation
     Route: 048
     Dates: start: 20220118
  3. PREDNISOLONE [Concomitant]
     Active Substance: PREDNISOLONE
     Indication: Chronic myeloid leukaemia transformation
     Route: 065
  4. PROGRAF [Concomitant]
     Active Substance: TACROLIMUS
     Indication: Chronic myeloid leukaemia transformation
     Route: 048
  5. LEVOTHYROXINE SODIUM [Concomitant]
     Active Substance: LEVOTHYROXINE SODIUM
     Indication: Hypothyroidism
     Route: 048

REACTIONS (8)
  - Necrosis ischaemic [Fatal]
  - Peripheral artery occlusion [Fatal]
  - Peripheral arterial occlusive disease [Fatal]
  - Skin erosion [Fatal]
  - Pain in extremity [Fatal]
  - Intermittent claudication [Fatal]
  - Skin ulcer [Fatal]
  - Bacterial infection [Fatal]

NARRATIVE: CASE EVENT DATE: 20210801
